FAERS Safety Report 7086292-1 (Version None)
Quarter: 2010Q4

REPORT INFORMATION
  Report Type: 
  Country: None (occurrence: None)
  Receive Date: 20101105
  Receipt Date: 20101027
  Transmission Date: 20110411
  Serious: Yes (Hospitalization, Other)
  Sender: FDA-Public Use
  Company Number: US-MERCK-1009USA00525

PATIENT
  Age: 72 Year
  Sex: Female

DRUGS (1)
  1. FOSAMAX [Suspect]
     Indication: OSTEOPENIA
     Route: 048
     Dates: start: 20050101, end: 20090101

REACTIONS (5)
  - ANXIETY [None]
  - DEPRESSION [None]
  - METASTASES TO LUNG [None]
  - METASTASES TO STOMACH [None]
  - OESOPHAGEAL CANCER METASTATIC [None]
